FAERS Safety Report 19171438 (Version 1)
Quarter: 2021Q2

REPORT INFORMATION
  Report Type: Spontaneous
  Country: US (occurrence: US)
  Receive Date: 20210421
  Receipt Date: 20210421
  Transmission Date: 20210717
  Serious: No
  Sender: FDA-Public Use
  Company Number: None

PATIENT
  Age: 27 Year
  Sex: Female
  Weight: 69.4 kg

DRUGS (1)
  1. DINOPROSTONE VAGINAL INSERT [Suspect]
     Active Substance: DINOPROSTONE
     Indication: LABOUR INDUCTION
     Route: 067
     Dates: start: 20210421, end: 20210421

REACTIONS (4)
  - Tremor [None]
  - Hypertonia [None]
  - Cough [None]
  - Tachycardia [None]

NARRATIVE: CASE EVENT DATE: 20210421
